FAERS Safety Report 15120629 (Version 1)
Quarter: 2018Q3

REPORT INFORMATION
  Report Type: Spontaneous
  Country: US (occurrence: US)
  Receive Date: 20180709
  Receipt Date: 20180709
  Transmission Date: 20181010
  Serious: No
  Sender: FDA-Public Use
  Company Number: US-APOTEX-2018AP015494

PATIENT
  Age: 7 Year
  Sex: Female

DRUGS (1)
  1. FLUTICASONE PROPIONATE NASAL SPRAY USP [Suspect]
     Active Substance: FLUTICASONE PROPIONATE
     Indication: HYPERSENSITIVITY
     Dosage: UNK, QD
     Route: 045
     Dates: start: 201805

REACTIONS (2)
  - Rhinalgia [Recovering/Resolving]
  - Nasal discomfort [Recovering/Resolving]
